FAERS Safety Report 8959983 (Version 1)
Quarter: 2012Q4

REPORT INFORMATION
  Report Type: 
  Country: FR (occurrence: FR)
  Receive Date: 20121211
  Receipt Date: 20121211
  Transmission Date: 20130627
  Serious: Yes (Hospitalization)
  Sender: FDA-Public Use
  Company Number: FR-BAYER-200000034BFR

PATIENT
  Age: 43 Year
  Sex: Male

DRUGS (1)
  1. GLUCOR [Suspect]
     Indication: TYPE 2 DIABETES MELLITUS
     Dosage: 1.5 g (Daily Dose), , oral
     Route: 048
     Dates: start: 20000113, end: 20000116

REACTIONS (6)
  - Acute generalised exanthematous pustulosis [Recovered/Resolved]
  - Thrombocytopenia [None]
  - Dyspnoea [None]
  - Hyperbilirubinaemia [None]
  - Pyrexia [Recovered/Resolved]
  - Lymphadenopathy [Recovered/Resolved]
